FAERS Safety Report 9868958 (Version 1)
Quarter: 2014Q1

REPORT INFORMATION
  Report Type: Report from Study
  Country: GB (occurrence: GB)
  Receive Date: 20140205
  Receipt Date: 20140205
  Transmission Date: 20141002
  Serious: Yes (Death, Hospitalization, Other)
  Sender: FDA-Public Use
  Company Number: GB-GILEAD-2014-0093477

PATIENT
  Age: 27 Year
  Sex: Female

DRUGS (7)
  1. EMTRICITABINE/TENOFOVIR DISOPROXIL FUMARATE [Suspect]
     Indication: HIV INFECTION
     Dosage: UNK
     Route: 065
     Dates: start: 20130923, end: 20131231
  2. EFAVIRENZ [Suspect]
     Indication: PRODUCT USED FOR UNKNOWN INDICATION
     Dosage: UNK
     Route: 065
     Dates: start: 20130923, end: 20131231
  3. RIFAMPIN [Suspect]
     Indication: PRODUCT USED FOR UNKNOWN INDICATION
     Dosage: UNK
     Route: 065
     Dates: start: 20130910, end: 20131231
  4. SEPTRIN [Concomitant]
     Dosage: UNK
     Route: 065
     Dates: start: 20130910, end: 20131231
  5. ETHAMBUTOL [Concomitant]
     Dosage: UNK
     Route: 065
     Dates: start: 20130910, end: 20131231
  6. PYRAZINAMIDE [Concomitant]
     Dosage: UNK
     Dates: start: 20130910, end: 20131231
  7. ISONIAZID [Concomitant]
     Dosage: UNK
     Route: 065
     Dates: start: 20130910, end: 20131231

REACTIONS (1)
  - Extrapulmonary tuberculosis [Fatal]
